FAERS Safety Report 16697490 (Version 1)
Quarter: 2019Q3

REPORT INFORMATION
  Report Type: Spontaneous
  Country: US (occurrence: US)
  Receive Date: 20190813
  Receipt Date: 20190813
  Transmission Date: 20191004
  Serious: Yes (Hospitalization)
  Sender: FDA-Public Use
  Company Number: US-PFIZER INC-2019347334

PATIENT
  Age: 52 Year
  Sex: Male

DRUGS (1)
  1. EMBEDA [Suspect]
     Active Substance: MORPHINE SULFATE\NALTREXONE HYDROCHLORIDE
     Dosage: UNK

REACTIONS (6)
  - Palpitations [Unknown]
  - Hypertension [Unknown]
  - Constipation [Unknown]
  - Product residue present [Unknown]
  - Hyperhidrosis [Unknown]
  - Withdrawal syndrome [Unknown]
